FAERS Safety Report 17379275 (Version 1)
Quarter: 2020Q1

REPORT INFORMATION
  Report Type: Spontaneous
  Country: US (occurrence: US)
  Receive Date: 20200206
  Receipt Date: 20200206
  Transmission Date: 20200409
  Serious: No
  Sender: FDA-Public Use
  Company Number: US-ABBVIE-19K-163-2675877-00

PATIENT

DRUGS (4)
  1. SULFASALAZINE. [Concomitant]
     Active Substance: SULFASALAZINE
     Indication: SERONEGATIVE ARTHRITIS
     Dates: start: 201709
  2. HYDROXYCHLOROQUINE [Suspect]
     Active Substance: HYDROXYCHLOROQUINE
     Indication: SERONEGATIVE ARTHRITIS
     Route: 065
     Dates: start: 201705, end: 201801
  3. HUMIRA [Suspect]
     Active Substance: ADALIMUMAB
     Indication: SERONEGATIVE ARTHRITIS
     Route: 058
     Dates: start: 2012, end: 2014
  4. METHOTREXATE. [Concomitant]
     Active Substance: METHOTREXATE
     Indication: SERONEGATIVE ARTHRITIS
     Dates: start: 201803

REACTIONS (2)
  - Drug ineffective [Unknown]
  - Infection [Unknown]
